FAERS Safety Report 19089564 (Version 1)
Quarter: 2021Q2

REPORT INFORMATION
  Report Type: Spontaneous
  Country: GB (occurrence: GB)
  Receive Date: 20210403
  Receipt Date: 20210403
  Transmission Date: 20210717
  Serious: Yes (Other)
  Sender: FDA-Public Use
  Company Number: NVSC2021GB070921

PATIENT
  Age: 77 Year
  Sex: Female
  Weight: 71.21 kg

DRUGS (3)
  1. CO?AMOXICLAV [Suspect]
     Active Substance: AMOXICILLIN\CLAVULANATE POTASSIUM
     Indication: DIVERTICULITIS
     Dosage: UNK (500 / 125 MG)
     Route: 048
     Dates: start: 20210303
  2. ESOMEPRAZOLE. [Concomitant]
     Active Substance: ESOMEPRAZOLE MAGNESIUM
     Indication: PRODUCT USED FOR UNKNOWN INDICATION
     Dosage: 20 MG
     Route: 065
  3. NITROFURANTOIN. [Concomitant]
     Active Substance: NITROFURANTOIN
     Indication: PRODUCT USED FOR UNKNOWN INDICATION
     Dosage: 100 MG
     Route: 065

REACTIONS (3)
  - Rash macular [Not Recovered/Not Resolved]
  - Pruritus [Not Recovered/Not Resolved]
  - Skin exfoliation [Not Recovered/Not Resolved]
